FAERS Safety Report 16230483 (Version 2)
Quarter: 2022Q2

REPORT INFORMATION
  Report Type: Report from Study
  Country: US (occurrence: US)
  Receive Date: 20190423
  Receipt Date: 20220411
  Transmission Date: 20220721
  Serious: No
  Sender: FDA-Public Use
  Company Number: US-TAKEDA-2019TUS023483

PATIENT
  Sex: Female

DRUGS (1)
  1. VORTIOXETINE [Suspect]
     Active Substance: VORTIOXETINE
     Indication: Product used for unknown indication
     Dosage: 20 MILLIGRAM
     Route: 048

REACTIONS (5)
  - Anxiety [Unknown]
  - Nasopharyngitis [Unknown]
  - Malaise [Recovering/Resolving]
  - Therapy interrupted [Recovering/Resolving]
  - Depression [Unknown]
